FAERS Safety Report 23538020 (Version 3)
Quarter: 2024Q2

REPORT INFORMATION
  Report Type: Spontaneous
  Country: CA (occurrence: CA)
  Receive Date: 20240219
  Receipt Date: 20240624
  Transmission Date: 20240716
  Serious: Yes (Hospitalization)
  Sender: FDA-Public Use
  Company Number: CA-JNJFOC-20240241900

PATIENT
  Age: 55 Year
  Sex: Male

DRUGS (14)
  1. ACETAMINOPHEN [Suspect]
     Active Substance: ACETAMINOPHEN
     Indication: Product used for unknown indication
     Dosage: UNCERTAIN ABOUT DOSAGE BUT AROUND 7.8 G IN 24 HOURS
     Route: 065
  2. ACETAMINOPHEN [Suspect]
     Active Substance: ACETAMINOPHEN
     Route: 065
  3. AMOXICILLIN\CLAVULANATE POTASSIUM [Suspect]
     Active Substance: AMOXICILLIN\CLAVULANATE POTASSIUM
     Indication: Cholecystitis infective
     Dosage: 875 + 125 MG; 1 TABLET TWICE A DAY FOR 10 DAYS
     Route: 048
     Dates: start: 20230305, end: 20230315
  4. AMOXICILLIN\CLAVULANATE POTASSIUM [Suspect]
     Active Substance: AMOXICILLIN\CLAVULANATE POTASSIUM
     Indication: Acute cholecystitis necrotic
  5. AMOXICILLIN\CLAVULANATE POTASSIUM [Suspect]
     Active Substance: AMOXICILLIN\CLAVULANATE POTASSIUM
     Indication: Cholecystitis infective
     Route: 048
  6. AMLODIPINE [Concomitant]
     Active Substance: AMLODIPINE BESYLATE
     Indication: Product used for unknown indication
     Dosage: 1 TABLET ONCE A DAY
     Route: 065
  7. AMLODIPINE [Concomitant]
     Active Substance: AMLODIPINE BESYLATE
     Route: 065
  8. HYDROMORPHONE [Concomitant]
     Active Substance: HYDROMORPHONE
     Indication: Product used for unknown indication
     Dosage: 1 TABLET 4 TIMES A DAY, AS NEEDED
     Route: 065
  9. HYDROMORPHONE [Concomitant]
     Active Substance: HYDROMORPHONE
     Route: 065
  10. NAPROXEN [Concomitant]
     Active Substance: NAPROXEN
     Indication: Product used for unknown indication
     Dosage: 1 TABLET TWICE A DAY WITH FOOD
     Route: 065
  11. NAPROXEN [Concomitant]
     Active Substance: NAPROXEN
     Route: 065
  12. RAMIPRIL [Concomitant]
     Active Substance: RAMIPRIL
     Indication: Product used for unknown indication
     Route: 065
  13. RAMIPRIL [Concomitant]
     Active Substance: RAMIPRIL
     Route: 065
  14. ACETAMINOPHEN [Concomitant]
     Active Substance: ACETAMINOPHEN
     Indication: Product used for unknown indication
     Dosage: 500 MG TABLET,  2 TABLETS 4 TIMES A DAY
     Route: 065

REACTIONS (2)
  - Hepatitis [Recovered/Resolved]
  - Jaundice [Recovered/Resolved]

NARRATIVE: CASE EVENT DATE: 20230406
